FAERS Safety Report 6658038-X (Version None)
Quarter: 2010Q1

REPORT INFORMATION
  Report Type: 
  Country: None (occurrence: None)
  Receive Date: 20100330
  Receipt Date: 20100316
  Transmission Date: 20100710
  Serious: Yes (Other)
  Sender: FDA-Public Use
  Company Number: B0643298A

PATIENT

DRUGS (8)
  1. TACROLIMUS [Suspect]
     Indication: PROPHYLAXIS AGAINST TRANSPLANT REJECTION
     Route: 065
  2. ETOPOSIDE [Suspect]
     Route: 065
  3. MELPHALAN HYDROCHLORIDE [Suspect]
     Route: 042
  4. SIROLIMUS [Suspect]
     Indication: PROPHYLAXIS AGAINST TRANSPLANT REJECTION
     Route: 048
  5. BUSULPHAN [Suspect]
     Route: 042
  6. FLUDARABINE PHOSPHATE [Suspect]
     Route: 042
  7. CYCLOPHOSPHAMIDE [Suspect]
     Dosage: 60MGK PER DAY
     Route: 065
  8. TOTAL BODY IRRADIATION [Suspect]
     Route: 065

REACTIONS (1)
  - THROMBOTIC MICROANGIOPATHY [None]
